FAERS Safety Report 24737438 (Version 2)
Quarter: 2025Q2

REPORT INFORMATION
  Report Type: Spontaneous
  Country: JP (occurrence: JP)
  Receive Date: 20241216
  Receipt Date: 20250407
  Transmission Date: 20250717
  Serious: Yes (Other)
  Sender: ROCHE
  Company Number: JP-CHUGAI-2024030871

PATIENT

DRUGS (1)
  1. VABYSMO [Suspect]
     Active Substance: FARICIMAB-SVOA
     Indication: Diabetic retinal oedema
     Dosage: 6 MILLIGRAM ONCE A MONTH IN LEFT EYE
     Route: 031
     Dates: start: 20240801

REACTIONS (2)
  - Eye inflammation [Unknown]
  - Eye inflammation [Recovering/Resolving]

NARRATIVE: CASE EVENT DATE: 20240902
